FAERS Safety Report 4962805-8 (Version None)
Quarter: 2006Q2

REPORT INFORMATION
  Report Type: 
  Country: None (occurrence: None)
  Receive Date: 20060405
  Receipt Date: 20060314
  Transmission Date: 20061013
  Serious: Yes (Life-Threatening, Hospitalization)
  Sender: FDA-Public Use
  Company Number: US-SANOFI-SYNTHELABO-F01200600753

PATIENT
  Sex: Male

DRUGS (11)
  1. OXALIPLATIN [Suspect]
     Indication: RECTAL CANCER
     Route: 042
     Dates: start: 20060213, end: 20060213
  2. AVASTIN [Suspect]
     Dosage: 500 MG/KG  / 100 MG
     Route: 042
     Dates: start: 20060213, end: 20060213
  3. LEUCOVORIN [Suspect]
     Route: 042
     Dates: start: 20060213
  4. FLUOROURACIL [Suspect]
     Dosage: 400 MG MG/M2 FOLLOWED BY 240 MG/M2 OVER 46 HOURS
     Route: 042
     Dates: start: 20060213, end: 20060215
  5. TYLENOL (CAPLET) [Concomitant]
     Dosage: UNKNOWN
     Route: 065
     Dates: start: 20060213
  6. ZOFRAN [Concomitant]
     Dosage: UNK
     Route: 065
     Dates: start: 20060213, end: 20060215
  7. DECADRON SRC [Concomitant]
     Dosage: UNKNOWN
     Route: 065
     Dates: start: 20060213
  8. BENADRYL [Concomitant]
     Dosage: UNKNOWN
     Route: 065
     Dates: start: 20060215
  9. COMPAZINE [Concomitant]
     Dosage: UNKNOWN
     Route: 065
     Dates: start: 20060213
  10. ALTACE [Concomitant]
     Dosage: UNKNOWN
     Route: 065
  11. ATENOLOL [Concomitant]
     Dosage: UNKNOWN

REACTIONS (10)
  - ARRHYTHMIA [None]
  - BUNDLE BRANCH BLOCK RIGHT [None]
  - CARDIAC ARREST [None]
  - CHEST PAIN [None]
  - DYSARTHRIA [None]
  - ELECTROCARDIOGRAM QT PROLONGED [None]
  - SPEECH DISORDER [None]
  - TREMOR [None]
  - VENTRICULAR DYSFUNCTION [None]
  - VENTRICULAR FIBRILLATION [None]
